FAERS Safety Report 22594125 (Version 2)
Quarter: 2023Q2

REPORT INFORMATION
  Report Type: Report from Study
  Country: CA (occurrence: CA)
  Receive Date: 20230613
  Receipt Date: 20230616
  Transmission Date: 20230721
  Serious: Yes (Hospitalization, Other)
  Sender: FDA-Public Use
  Company Number: CA-GLAXOSMITHKLINE-CA2023AMR080350

PATIENT

DRUGS (1)
  1. MEPOLIZUMAB [Suspect]
     Active Substance: MEPOLIZUMAB
     Indication: Asthma
     Dosage: 100 MG, Q4W
     Route: 058
     Dates: start: 20190503

REACTIONS (10)
  - Pneumonia [Unknown]
  - Respiratory disorder [Unknown]
  - Dyspnoea [Unknown]
  - Cough [Unknown]
  - Hip fracture [Unknown]
  - Fall [Unknown]
  - Asthma [Unknown]
  - Hip arthroplasty [Unknown]
  - Inappropriate schedule of product administration [Unknown]
  - Drug ineffective [Unknown]

NARRATIVE: CASE EVENT DATE: 20230607
